FAERS Safety Report 4546098-1 (Version None)
Quarter: 2005Q1

REPORT INFORMATION
  Report Type: 
  Country: None (occurrence: None)
  Receive Date: 20050103
  Receipt Date: 20041220
  Transmission Date: 20050727
  Serious: Yes (Hospitalization)
  Sender: FDA-Public Use
  Company Number: HQWYE122921DEC04

PATIENT
  Age: 45 Year
  Sex: Female
  Weight: 101.7 kg

DRUGS (1)
  1. MYLOTARG [Suspect]
     Indication: ACUTE MYELOID LEUKAEMIA
     Dosage: 18 MG X 2 DOSES, INTRAVENOUS
     Route: 030
     Dates: start: 20040830

REACTIONS (1)
  - FEBRILE NEUTROPENIA [None]
